FAERS Safety Report 6405375-X (Version None)
Quarter: 2009Q4

REPORT INFORMATION
  Report Type: 
  Country: None (occurrence: None)
  Receive Date: 20091016
  Receipt Date: 20091016
  Transmission Date: 20100525
  Serious: Yes (Life-Threatening, Other)
  Sender: FDA-Public Use
  Company Number: None

PATIENT
  Sex: Male
  Weight: 78.0187 kg

DRUGS (3)
  1. DIVALPROEX 250 + 500 MG. P/DAY [Suspect]
     Indication: ANXIETY
     Dosage: 250 + 500 MG 1 AM + 1 PM
     Dates: start: 20080901
  2. DIVALPROEX 250 + 500 MG. P/DAY [Suspect]
     Indication: CONVULSION
     Dosage: 250 + 500 MG 1 AM + 1 PM
     Dates: start: 20080901
  3. LOPERAMIDE [Suspect]
     Indication: DIARRHOEA
     Dates: start: 20060906

REACTIONS (2)
  - DEMENTIA ALZHEIMER'S TYPE [None]
  - SOMNOLENCE [None]
